FAERS Safety Report 11941833 (Version 1)
Quarter: 2016Q1

REPORT INFORMATION
  Report Type: Report from Study
  Country: ES (occurrence: ES)
  Receive Date: 20160124
  Receipt Date: 20160124
  Transmission Date: 20160526
  Serious: Yes (Death, Hospitalization, Other)
  Sender: FDA-Public Use
  Company Number: ES-BRISTOL-MYERS SQUIBB COMPANY-BMS-2015-066396

PATIENT
  Age: 66 Year
  Sex: Male

DRUGS (5)
  1. NIVOLUMAB [Suspect]
     Active Substance: NIVOLUMAB
     Indication: NON-SMALL CELL LUNG CANCER
     Dosage: 270 MG, UNK
     Route: 065
     Dates: start: 20150717
  2. NIVOLUMAB [Suspect]
     Active Substance: NIVOLUMAB
     Dosage: 291 UNK, UNK
     Route: 065
     Dates: start: 20150817
  3. NIVOLUMAB [Suspect]
     Active Substance: NIVOLUMAB
     Dosage: 297 UNK, UNK
     Route: 065
     Dates: start: 20150914
  4. NIVOLUMAB [Suspect]
     Active Substance: NIVOLUMAB
     Dosage: 297 UNK, UNK
     Route: 065
     Dates: start: 20150730
  5. NIVOLUMAB [Suspect]
     Active Substance: NIVOLUMAB
     Dosage: 291 MG, UNK
     Route: 065
     Dates: start: 20150831

REACTIONS (2)
  - Pneumonitis [Recovered/Resolved]
  - Respiratory failure [Fatal]

NARRATIVE: CASE EVENT DATE: 20150928
